FAERS Safety Report 18633508 (Version 1)
Quarter: 2020Q4

REPORT INFORMATION
  Report Type: Spontaneous
  Country: US (occurrence: US)
  Receive Date: 20201218
  Receipt Date: 20201218
  Transmission Date: 20210114
  Serious: No
  Sender: FDA-Public Use
  Company Number: US-SUNOVION-2020SUN003708

PATIENT
  Sex: Male

DRUGS (2)
  1. KYNMOBI [Suspect]
     Active Substance: APOMORPHINE HYDROCHLORIDE
     Dosage: UNK
     Route: 060
  2. APOKYN [Concomitant]
     Active Substance: APOMORPHINE HYDROCHLORIDE
     Dosage: UNK
     Route: 065

REACTIONS (3)
  - Therapeutic product effect incomplete [Unknown]
  - Dyspepsia [Unknown]
  - Product taste abnormal [Unknown]
